FAERS Safety Report 9164479 (Version 1)
Quarter: 2013Q1

REPORT INFORMATION
  Report Type: Spontaneous
  Country: DK (occurrence: None)
  Receive Date: 20130221
  Receipt Date: 20130221
  Transmission Date: 20140127
  Serious: Yes (Life-Threatening, Disabling, Other)
  Sender: FDA-Public Use
  Company Number: 2013MA001220

PATIENT
  Age: 44 Year
  Sex: Male

DRUGS (7)
  1. GABAPENTIN CAPSULES (GABAPENTIN) [Suspect]
     Indication: BACK PAIN
     Route: 048
     Dates: start: 20120606, end: 20120615
  2. CO-CODAMOL (PANADEINE CO) [Suspect]
     Indication: BACK PAIN
     Dates: start: 20120412, end: 20120612
  3. AMITRIPTYLINE (AMITRIPTYLINE) [Suspect]
     Indication: BACK PAIN
     Route: 048
     Dates: start: 20120402, end: 20120404
  4. PREGABALIN [Concomitant]
  5. NAPROSYN [Concomitant]
  6. AMITRIPTYLINE [Concomitant]
  7. CO-CODAMOL [Concomitant]

REACTIONS (15)
  - Discomfort [None]
  - Pain [None]
  - Panic attack [None]
  - Anxiety [None]
  - Suicidal ideation [None]
  - Disturbance in attention [None]
  - Impaired work ability [None]
  - Obsessive thoughts [None]
  - Personality change [None]
  - Drug ineffective [None]
  - Drug dispensing error [None]
  - Incorrect dose administered [None]
  - Medication error [None]
  - Fear [None]
  - Apathy [None]
